FAERS Safety Report 23923584 (Version 1)
Quarter: 2024Q2

REPORT INFORMATION
  Report Type: Other
  Country: US (occurrence: None)
  Receive Date: 20240531
  Receipt Date: 20240531
  Transmission Date: 20240716
  Serious: Yes (Death, Hospitalization)
  Sender: FDA-Public Use
  Company Number: US-ROCHE-3568065

PATIENT
  Age: 67 Year
  Sex: Male
  Weight: 111.23 kg

DRUGS (7)
  1. AVASTIN [Suspect]
     Active Substance: BEVACIZUMAB
     Indication: Colon cancer
     Dosage: INFUSE 738MG INTRAVENOUSLY EVERY 14 DAY(S)?400 MG/16ML VIAL
     Route: 042
     Dates: start: 20220222, end: 20231020
  2. AVASTIN [Suspect]
     Active Substance: BEVACIZUMAB
     Route: 042
  3. AVASTIN [Suspect]
     Active Substance: BEVACIZUMAB
     Route: 042
     Dates: start: 20230928
  4. RETACRIT [Concomitant]
     Active Substance: EPOETIN ALFA-EPBX
     Route: 058
     Dates: start: 20230428, end: 20230615
  5. FLUOROURACIL [Concomitant]
     Active Substance: FLUOROURACIL
     Indication: Colon cancer
     Dosage: 6 CYCLES OF 5FU TREATMENT
     Dates: start: 20220222, end: 20220322
  6. PREDNISONE [Concomitant]
     Active Substance: PREDNISONE
     Route: 048
     Dates: start: 20240307
  7. ZOFRAN [Concomitant]
     Active Substance: ONDANSETRON HYDROCHLORIDE

REACTIONS (9)
  - Intestinal perforation [Fatal]
  - Sepsis [Fatal]
  - Metastases to peritoneum [Unknown]
  - Metastases to liver [Unknown]
  - Gastrointestinal inflammation [Unknown]
  - Colitis [Unknown]
  - Cytomegalovirus infection [Unknown]
  - Arthritis [Unknown]
  - Central venous catheterisation [Unknown]

NARRATIVE: CASE EVENT DATE: 20230825
